FAERS Safety Report 18252676 (Version 1)
Quarter: 2020Q3

REPORT INFORMATION
  Report Type: Spontaneous
  Country: US (occurrence: US)
  Receive Date: 20200910
  Receipt Date: 20200910
  Transmission Date: 20201103
  Serious: No
  Sender: FDA-Public Use
  Company Number: None

PATIENT
  Age: 26 Year
  Sex: Female
  Weight: 85.5 kg

DRUGS (1)
  1. BACTRIM [Suspect]
     Active Substance: SULFAMETHOXAZOLE\TRIMETHOPRIM
     Indication: CYSTITIS
     Route: 051
     Dates: start: 20200827, end: 20200827

REACTIONS (3)
  - Erythema [None]
  - Adverse drug reaction [None]
  - Pruritus [None]

NARRATIVE: CASE EVENT DATE: 20200827
